FAERS Safety Report 17968221 (Version 1)
Quarter: 2020Q3

REPORT INFORMATION
  Report Type: Spontaneous
  Country: DE (occurrence: DE)
  Receive Date: 20200701
  Receipt Date: 20200701
  Transmission Date: 20201103
  Serious: Yes (Life-Threatening, Hospitalization)
  Sender: FDA-Public Use
  Company Number: DE-TEVA-2020-DE-1793095

PATIENT
  Age: 61 Year
  Sex: Male

DRUGS (19)
  1. ESCITALOPRAM [Suspect]
     Active Substance: ESCITALOPRAM OXALATE
     Dosage: 20 MILLIGRAM DAILY;  1?0?0?0,
     Route: 048
  2. MIRTAZAPIN [Interacting]
     Active Substance: MIRTAZAPINE
     Dosage: 30 MILLIGRAM DAILY;  0?0?1?0,
     Route: 048
  3. XIPAMID [Concomitant]
     Active Substance: XIPAMIDE
     Dosage: 10 MILLIGRAM DAILY;  1?0?0?0,
     Route: 048
  4. MACROGOL [Concomitant]
     Active Substance: POLYETHYLENE GLYCOLS
     Dosage: 1 DOSAGE FORMS DAILY; NK MG, 1?0?0?0
     Route: 048
  5. INSPIOLTO RESPIMAT 2,5MIKROGRAMM/2,5MIKROGRAMM [Concomitant]
     Dosage: 2 DOSAGE FORMS DAILY; 2.5 | 2.5 MG / MICROGRAM, 2?0?0?0, MDI
     Route: 055
  6. EPLERENON [Interacting]
     Active Substance: EPLERENONE
     Dosage: 25 MILLIGRAM DAILY; 1?0?0?0,
     Route: 048
  7. METOPROLOL. [Interacting]
     Active Substance: METOPROLOL
     Dosage: 190 MILLIGRAM DAILY;  1?0?1?0,
     Route: 048
  8. PROMETHAZINE [Interacting]
     Active Substance: PROMETHAZINE HYDROCHLORIDE
     Dosage: 20 MG, 10?10?10?0, DROPS
     Route: 048
  9. IPRATROPIUMBROMID [Concomitant]
     Active Substance: IPRATROPIUM BROMIDE
     Dosage: NK MG, 5X, MDI
     Route: 055
  10. PANTOPRAZOL [Concomitant]
     Active Substance: PANTOPRAZOLE SODIUM
     Dosage: 40 MILLIGRAM DAILY;  1?0?0?0,
     Route: 048
  11. APIXABAN [Concomitant]
     Active Substance: APIXABAN
     Dosage: 10 MILLIGRAM DAILY;  1?0?1?0,
     Route: 048
  12. DIGITOXIN [Concomitant]
     Active Substance: DIGITOXIN
     Dosage: .07 MILLIGRAM DAILY; 1?0?0?0,
     Route: 048
  13. TAMSULOSIN [Concomitant]
     Active Substance: TAMSULOSIN
     Dosage: .4 MILLIGRAM DAILY; 1?0?0?0,
     Route: 048
  14. HUMALOG 100 E/ML INJEKTIONSLOESUNG [Concomitant]
     Dosage: NEVER, ACCORDING TO PLAN
     Route: 058
  15. MORPHINE [Interacting]
     Active Substance: MORPHINE
     Dosage: 30 MILLIGRAM DAILY;  1?1?1?0,
     Route: 048
  16. ROFLUMILAST. [Concomitant]
     Active Substance: ROFLUMILAST
     Dosage: .5 MILLIGRAM DAILY; 1?0?0?0,
     Route: 048
  17. LEVOTHYROXINE SODIUM. [Concomitant]
     Active Substance: LEVOTHYROXINE SODIUM
     Dosage: .5 DOSAGE FORMS DAILY; 50 MICROGRAM 0.5?0?0?0,
     Route: 048
  18. PREDNISOLON [Concomitant]
     Active Substance: PREDNISOLONE
     Dosage: 30 MILLIGRAM DAILY;  1?0?0?0,
     Route: 048
  19. ARFORMOTEROL [Concomitant]
     Active Substance: ARFORMOTEROL
     Dosage: 2 DOSAGE FORMS DAILY; NK MG, 1?0?1?0
     Route: 048

REACTIONS (5)
  - Labelled drug-drug interaction medication error [Unknown]
  - Oedema peripheral [Unknown]
  - Hypotension [Unknown]
  - Cold sweat [Unknown]
  - Dyspnoea [Unknown]
